FAERS Safety Report 9052634 (Version 5)
Quarter: 2013Q2

REPORT INFORMATION
  Report Type: Report from Study
  Country: US (occurrence: US)
  Receive Date: 20130207
  Receipt Date: 20130408
  Transmission Date: 20140414
  Serious: No
  Sender: FDA-Public Use
  Company Number: US-VERTEX PHARMACEUTICALS INC.-2013-001213

PATIENT
  Age: 56 Year
  Sex: Male
  Weight: 85 kg

DRUGS (8)
  1. VX-950 (TELAPREVIR) [Suspect]
     Indication: HEPATITIS C
     Dosage: 750 MG, TID
     Route: 048
     Dates: start: 20130120, end: 20130227
  2. PEGASYS [Suspect]
     Indication: HEPATITIS C
     Dosage: 180 ?G, QW
     Route: 058
     Dates: start: 20130120, end: 20130227
  3. RIBASPHERE [Suspect]
     Indication: HEPATITIS C
     Dosage: 400 MG, BID
     Route: 048
     Dates: start: 20130120, end: 20130227
  4. CALCIUM [Concomitant]
     Dosage: 600 MG, QD
     Route: 048
  5. MILK THISTLE [Concomitant]
     Dosage: 2 DF, QD
     Route: 048
  6. FLAXSEED OIL [Concomitant]
     Dosage: 1000 MG, QD
     Route: 048
  7. VITAMIN B-12 [Concomitant]
     Dosage: 500 ?G, QD
     Route: 048
  8. FISH OIL [Concomitant]
     Dosage: 1200 MG, QD
     Route: 048

REACTIONS (4)
  - Laboratory test abnormal [Not Recovered/Not Resolved]
  - Drug eruption [Recovered/Resolved]
  - Pruritus [Recovered/Resolved]
  - Drug ineffective [Recovered/Resolved]
